FAERS Safety Report 13074098 (Version 1)
Quarter: 2016Q4

REPORT INFORMATION
  Report Type: Spontaneous
  Country: CA (occurrence: CA)
  Receive Date: 20161229
  Receipt Date: 20161229
  Transmission Date: 20170207
  Serious: Yes (Other)
  Sender: FDA-Public Use
  Company Number: CA-TEVA-723510ACC

PATIENT
  Age: 66 Year
  Sex: Female
  Weight: 74.46 kg

DRUGS (10)
  1. VITAMIN D [Concomitant]
     Active Substance: CHOLECALCIFEROL
  2. BUPROPION SR [Concomitant]
     Active Substance: BUPROPION
  3. CALCIUM [Concomitant]
     Active Substance: CALCIUM
  4. VASOTEC [Concomitant]
     Active Substance: ENALAPRIL MALEATE
  5. METFORMIN [Concomitant]
     Active Substance: METFORMIN HYDROCHLORIDE
  6. NOVORAPID [Concomitant]
     Active Substance: INSULIN ASPART
  7. AMLODIPINE [Suspect]
     Active Substance: AMLODIPINE BESYLATE
     Indication: HYPERTENSION
     Dosage: 10 MILLIGRAM DAILY;
     Route: 048
  8. BISOPROLOL [Concomitant]
     Active Substance: BISOPROLOL
  9. HUMULIN NOS [Concomitant]
     Active Substance: INSULIN HUMAN
  10. LIPITOR [Concomitant]
     Active Substance: ATORVASTATIN CALCIUM

REACTIONS (4)
  - Insomnia [Not Recovered/Not Resolved]
  - Memory impairment [Not Recovered/Not Resolved]
  - Aggression [Not Recovered/Not Resolved]
  - Agitation [Not Recovered/Not Resolved]
